FAERS Safety Report 6528932-9 (Version None)
Quarter: 2009Q4

REPORT INFORMATION
  Report Type: 
  Country: None (occurrence: None)
  Receive Date: 20091224
  Receipt Date: 20091211
  Transmission Date: 20100525
  Serious: Yes (Death)
  Sender: FDA-Public Use
  Company Number: 007405

PATIENT
  Age: 80 Year
  Sex: Male

DRUGS (5)
  1. PLETAL [Suspect]
     Indication: ARTERIOSCLEROSIS OBLITERANS
     Dosage: 100 MG, BID, ORAL
     Route: 048
     Dates: start: 20090221, end: 20090405
  2. BLOPRESS (CANDESARTAN CILEXETIL) TABLET [Concomitant]
  3. ADALATE-CR (NIFEDIPINE) TABLET [Concomitant]
  4. DOXAZOSIN MESYLATE [Concomitant]
  5. ANTIDIABETIC AGENTS (ANTIDIABETIC AGENTS) [Concomitant]

REACTIONS (1)
  - SUBARACHNOID HAEMORRHAGE [None]
